FAERS Safety Report 8244516-9 (Version None)
Quarter: 2012Q1

REPORT INFORMATION
  Report Type: 
  Country: None (occurrence: None)
  Receive Date: 20120329
  Receipt Date: 20120320
  Transmission Date: 20120608
  Serious: Yes (Other)
  Sender: FDA-Public Use
  Company Number: GB-JNJFOC-2005113353

PATIENT
  Sex: Female

DRUGS (2)
  1. NICORETTE [Suspect]
     Indication: ACCIDENTAL EXPOSURE
     Route: 055
  2. NICORETTE [Suspect]
     Route: 055

REACTIONS (11)
  - ASTHMA [None]
  - HEADACHE [None]
  - GASTROINTESTINAL PAIN [None]
  - MIGRAINE [None]
  - HYPERSENSITIVITY [None]
  - EYE PAIN [None]
  - ARRHYTHMIA [None]
  - ACCIDENTAL EXPOSURE [None]
  - HEPATIC PAIN [None]
  - PAIN [None]
  - CHEST PAIN [None]
